FAERS Safety Report 4701284-2 (Version None)
Quarter: 2005Q2

REPORT INFORMATION
  Report Type: 
  Country: None (occurrence: None)
  Receive Date: 20050628
  Receipt Date: 20050613
  Transmission Date: 20051028
  Serious: Yes (Hospitalization, Other)
  Sender: FDA-Public Use
  Company Number: US-MERCK-0506USA02136

PATIENT
  Age: 58 Year
  Sex: Male
  Weight: 91 kg

DRUGS (6)
  1. VIOXX [Suspect]
     Indication: ARTHRALGIA
     Route: 048
     Dates: start: 20030325, end: 20030801
  2. LESCOL [Concomitant]
     Route: 065
  3. VERAPAMIL MSD LP [Concomitant]
     Route: 065
  4. FLOMAX [Concomitant]
     Route: 065
  5. BEXTRA [Concomitant]
     Route: 065
     Dates: start: 20030826, end: 20040708
  6. [THERAPY UNSPECIFIED] [Concomitant]
     Route: 065

REACTIONS (4)
  - ASTHMA [None]
  - CARDIAC DISORDER [None]
  - MALAISE [None]
  - MYOCARDIAL INFARCTION [None]
